FAERS Safety Report 8481542-9 (Version None)
Quarter: 2012Q3

REPORT INFORMATION
  Report Type: 
  Country: None (occurrence: None)
  Receive Date: 20120702
  Receipt Date: 20120622
  Transmission Date: 20120928
  Serious: Yes (Hospitalization)
  Sender: FDA-Public Use
  Company Number: US-BAYER-2011-108809

PATIENT
  Age: 37 Year
  Sex: Female
  Weight: 72 kg

DRUGS (11)
  1. VENLAFAXINE HYDROCHOLRIDE [Concomitant]
     Dosage: 75 MG, EVERY DAY
  2. CLOTRIMAZOLE [Concomitant]
     Dosage: APPLY THIN FILM TO AFFECTED AREA TWICE DAILY
  3. YASMIN [Suspect]
     Dosage: UNK
     Route: 048
     Dates: start: 20070514, end: 20080514
  4. VENLAFAXINE HYDROCHOLRIDE [Concomitant]
     Dosage: 150 MG, OM
     Dates: start: 20020101
  5. ZOLMITRIPTAN [Concomitant]
     Indication: MIGRAINE
     Dosage: 5 MG, AS DIRECTED
  6. CALCIUM WITH VITAMIN D [Concomitant]
     Dosage: 500 MG/200 UNIT, BID
  7. UREA [Concomitant]
     Dosage: 10 %, BID
  8. HYDROXYZINE PAMOATE [Concomitant]
     Indication: ECZEMA
     Dosage: 25 MG, HS
  9. METFORMIN HCL [Concomitant]
     Dosage: 500 MG, TID
  10. RANITIDINE HCL [Concomitant]
     Dosage: 300 MG, BID
  11. STANNOUS FLUORIDE [Concomitant]
     Dosage: 0.4 %, UNK

REACTIONS (3)
  - DEEP VEIN THROMBOSIS [None]
  - PULMONARY EMBOLISM [None]
  - INJURY [None]
